FAERS Safety Report 4731231-9 (Version None)
Quarter: 2005Q3

REPORT INFORMATION
  Report Type: 
  Country: None (occurrence: None)
  Receive Date: 20050802
  Receipt Date: 20050722
  Transmission Date: 20060218
  Serious: Yes (Hospitalization)
  Sender: FDA-Public Use
  Company Number: US-JNJFOC-20050704852

PATIENT
  Sex: Female

DRUGS (8)
  1. INFLIXIMAB [Suspect]
     Indication: RHEUMATOID ARTHRITIS
     Route: 042
  2. AVAPRO [Concomitant]
  3. FOLIC ACID [Concomitant]
  4. GLUCOPHAGE [Concomitant]
  5. GLUCOTROL [Concomitant]
  6. METHOTREXATE [Concomitant]
  7. AVANDIA [Concomitant]
  8. BEXTRA [Concomitant]

REACTIONS (1)
  - CORONARY ARTERY DISEASE [None]
